FAERS Safety Report 6891074-7 (Version None)
Quarter: 2010Q3

REPORT INFORMATION
  Report Type: 
  Country: None (occurrence: None)
  Receive Date: 20100731
  Receipt Date: 20090526
  Transmission Date: 20110219
  Serious: No
  Sender: FDA-Public Use
  Company Number: US-PFIZER INC-2009204070

PATIENT
  Sex: Male
  Weight: 95.707 kg

DRUGS (7)
  1. LIPITOR [Suspect]
     Indication: VASCULAR GRAFT
     Dosage: 80 MG, 1X/DAY
     Route: 048
     Dates: start: 20050801
  2. SITAGLIPTIN [Concomitant]
     Dosage: UNK
  3. QUINAPRIL [Concomitant]
     Dosage: UNK
  4. METOPROLOL [Concomitant]
     Dosage: UNK
  5. GLYBURIDE [Concomitant]
     Dosage: UNK
  6. AMLODIPINE [Concomitant]
     Dosage: UNK
  7. LANTUS [Concomitant]
     Dosage: UNK

REACTIONS (2)
  - PAIN IN EXTREMITY [None]
  - WRONG TECHNIQUE IN DRUG USAGE PROCESS [None]
